FAERS Safety Report 7225321-9 (Version None)
Quarter: 2011Q1

REPORT INFORMATION
  Report Type: 
  Country: None (occurrence: None)
  Receive Date: 20110104
  Receipt Date: 20101224
  Transmission Date: 20110831
  Serious: Yes (Hospitalization)
  Sender: FDA-Public Use
  Company Number: 022048

PATIENT
  Sex: Male
  Weight: 73 kg

DRUGS (4)
  1. PREDNISONE [Concomitant]
  2. CIMZIA [Suspect]
     Indication: RHEUMATOID ARTHRITIS
     Dosage: 400 MG 1X/2 WEEKS SUBCUTANEOUS
     Route: 058
     Dates: start: 20101104, end: 20100101
  3. METHOTREXATE [Concomitant]
  4. PLAQUENIL [Concomitant]

REACTIONS (9)
  - PULMONARY EMBOLISM [None]
  - LYMPHADENOPATHY [None]
  - DECREASED APPETITE [None]
  - TOOTHACHE [None]
  - NAUSEA [None]
  - CARDIAC DISORDER [None]
  - ASTHENIA [None]
  - HYPERTENSION [None]
  - TACHYCARDIA [None]
